FAERS Safety Report 7349264-5 (Version None)
Quarter: 2011Q1

REPORT INFORMATION
  Report Type: 
  Country: None (occurrence: None)
  Receive Date: 20110303
  Receipt Date: 20110225
  Transmission Date: 20110831
  Serious: Yes (Hospitalization, Other)
  Sender: FDA-Public Use
  Company Number: 2011SP009094

PATIENT
  Age: 25 Year
  Sex: Female
  Weight: 72.5755 kg

DRUGS (1)
  1. IMPLANON [Suspect]
     Indication: CONTRACEPTION
     Dates: start: 20100119

REACTIONS (6)
  - UTERINE HAEMORRHAGE [None]
  - GALACTORRHOEA [None]
  - POLYMENORRHOEA [None]
  - WEIGHT DECREASED [None]
  - MENORRHAGIA [None]
  - PANCREATITIS [None]
